FAERS Safety Report 5803389-1 (Version None)
Quarter: 2008Q3

REPORT INFORMATION
  Report Type: 
  Country: None (occurrence: None)
  Receive Date: 20080708
  Receipt Date: 20080703
  Transmission Date: 20090109
  Serious: Yes (Death)
  Sender: FDA-Public Use
  Company Number: CN-BAYER-200821528GPV

PATIENT

DRUGS (2)
  1. NEXAVAR [Suspect]
     Indication: RENAL CANCER
     Dosage: TOTAL DAILY DOSE: 800 MG
     Route: 048
  2. INTERFERON [Concomitant]
     Indication: RENAL CANCER
     Route: 065

REACTIONS (1)
  - DEATH [None]
